FAERS Safety Report 6134321-1 (Version None)
Quarter: 2009Q1

REPORT INFORMATION
  Report Type: 
  Country: None (occurrence: None)
  Receive Date: 20090325
  Receipt Date: 20090318
  Transmission Date: 20090719
  Serious: Yes (Hospitalization)
  Sender: FDA-Public Use
  Company Number: 188380ISR

PATIENT

DRUGS (1)
  1. MORPHINE [Suspect]

REACTIONS (3)
  - NAUSEA [None]
  - NIGHTMARE [None]
  - VOMITING [None]
